FAERS Safety Report 23588528 (Version 2)
Quarter: 2024Q1

REPORT INFORMATION
  Report Type: Report from Study
  Country: BR (occurrence: BR)
  Receive Date: 20240302
  Receipt Date: 20240314
  Transmission Date: 20240409
  Serious: Yes (Hospitalization, Other)
  Sender: FDA-Public Use
  Company Number: BR-CELLTRION INC.-2024BR005074

PATIENT

DRUGS (6)
  1. INFLIXIMAB [Suspect]
     Active Substance: INFLIXIMAB
     Indication: Colitis ulcerative
     Dosage: LOADING DOSE (ATTACK DOSE 4 AMPOULES)
     Route: 042
     Dates: start: 20240123, end: 20240123
  2. ROSUVASTATIN [Concomitant]
     Active Substance: ROSUVASTATIN
     Indication: Blood cholesterol
     Dosage: 10 MG 1 PILL A DAY, STARTED 4 YEARS AGO
     Route: 048
  3. TIBOLONA 1 [Concomitant]
     Indication: Hormone replacement therapy
     Dosage: 25 MG, 1 PILL A DAY, STARTED 8 YEARS AGO
     Route: 048
  4. ESCITALOPRAM [Concomitant]
     Active Substance: ESCITALOPRAM OXALATE
     Indication: Depression
     Dosage: 20 MG, 1 PILL A DAY, STARTED 8 YEARS AGO
     Route: 048
  5. CYANOCOBALAMIN [Concomitant]
     Active Substance: CYANOCOBALAMIN
     Indication: Vitamin supplementation
     Dosage: 1 PILL A DAY, STARTED 3 YEARS AGO
     Route: 048
  6. CALCIUM [Concomitant]
     Active Substance: CALCIUM
     Indication: Mineral supplementation
     Dosage: 1 PILL A DAY, STARTED 3 YEARS AGO
     Route: 048

REACTIONS (10)
  - Poisoning [Recovered/Resolved]
  - Illness [Unknown]
  - Blister [Unknown]
  - Nausea [Recovered/Resolved]
  - Vomiting [Recovered/Resolved]
  - Pain [Recovered/Resolved]
  - Headache [Recovered/Resolved]
  - Pruritus [Recovered/Resolved]
  - Immunodeficiency [Recovered/Resolved]
  - COVID-19 [Recovered/Resolved]

NARRATIVE: CASE EVENT DATE: 20240123
